FAERS Safety Report 7248603-3 (Version None)
Quarter: 2011Q1

REPORT INFORMATION
  Report Type: 
  Country: None (occurrence: None)
  Receive Date: 20110128
  Receipt Date: 20110104
  Transmission Date: 20110831
  Serious: Yes (Other)
  Sender: FDA-Public Use
  Company Number: US-BAYER-2011-001540

PATIENT
  Sex: Male
  Weight: 73 kg

DRUGS (11)
  1. CALCIUM [Concomitant]
  2. ASPIRIN [Suspect]
  3. PRAVASTATIN [Concomitant]
  4. LISINOPRIL [Concomitant]
  5. FISH OIL [Concomitant]
  6. EZETIMIBE [Concomitant]
  7. ISOSORBIDE MONONITRATE [Concomitant]
  8. METOPROLOL [Concomitant]
  9. PLAVIX [Suspect]
  10. UBIDECARENONE [Concomitant]
  11. NIASPAN [Suspect]
     Dosage: 50 MG, QD
     Dates: start: 20101001

REACTIONS (6)
  - URINE ANALYSIS ABNORMAL [None]
  - HYPOTENSION [None]
  - FREQUENT BOWEL MOVEMENTS [None]
  - URINE OUTPUT INCREASED [None]
  - DIZZINESS [None]
  - RECTAL HAEMORRHAGE [None]
